FAERS Safety Report 10133088 (Version 1)
Quarter: 2014Q2

REPORT INFORMATION
  Report Type: Report from Study
  Country: US (occurrence: US)
  Receive Date: 20140428
  Receipt Date: 20140428
  Transmission Date: 20141212
  Serious: Yes (Hospitalization, Other)
  Sender: FDA-Public Use
  Company Number: US-SA-2014SA052286

PATIENT
  Age: 52 Year
  Sex: Female

DRUGS (3)
  1. LANTUS SOLOSTAR [Suspect]
     Indication: TYPE 2 DIABETES MELLITUS
     Dosage: DOSE:25 UNIT(S)
     Route: 058
  2. LANTUS SOLOSTAR [Suspect]
     Indication: TYPE 2 DIABETES MELLITUS
     Dosage: DOSE:50 UNIT(S)
     Route: 058
  3. SOLOSTAR [Concomitant]
     Indication: DEVICE THERAPY

REACTIONS (8)
  - Renal failure acute [Unknown]
  - Renal disorder [Unknown]
  - Cerebrovascular accident [Unknown]
  - Abasia [Unknown]
  - Dysgraphia [Unknown]
  - Asthenia [Unknown]
  - Insomnia [Unknown]
  - Blood glucose abnormal [Unknown]
